FAERS Safety Report 9010335 (Version 1)
Quarter: 2013Q1

REPORT INFORMATION
  Report Type: Spontaneous
  Country: US (occurrence: US)
  Receive Date: 20130109
  Receipt Date: 20130109
  Transmission Date: 20140127
  Serious: Yes (Other)
  Sender: FDA-Public Use
  Company Number: US-GLAXOSMITHKLINE-A1007470A

PATIENT
  Age: 64 Year
  Sex: Male

DRUGS (2)
  1. ALLI [Suspect]
     Indication: WEIGHT DECREASED
     Route: 048
  2. STOOL SOFTENER [Concomitant]

REACTIONS (9)
  - Haematochezia [Not Recovered/Not Resolved]
  - Faeces hard [Not Recovered/Not Resolved]
  - Steatorrhoea [Recovered/Resolved]
  - Faeces pale [Recovered/Resolved]
  - Diarrhoea [Recovered/Resolved]
  - Therapeutic response unexpected [Unknown]
  - Treatment noncompliance [Unknown]
  - Painful defaecation [Not Recovered/Not Resolved]
  - Drug administration error [Unknown]
